FAERS Safety Report 6613662-5 (Version None)
Quarter: 2010Q1

REPORT INFORMATION
  Report Type: 
  Country: None (occurrence: None)
  Receive Date: 20100304
  Receipt Date: 20100226
  Transmission Date: 20100710
  Serious: Yes (Hospitalization)
  Sender: FDA-Public Use
  Company Number: US-RB-003557-10

PATIENT
  Age: 25 Year
  Sex: Female

DRUGS (3)
  1. SUBOXONE [Suspect]
     Route: 060
     Dates: start: 20100101, end: 20100219
  2. SUBOXONE [Suspect]
     Route: 060
     Dates: start: 20100220
  3. SEROQUEL [Suspect]
     Dosage: UNKNOWN DOSING DETAILS
     Route: 048
     Dates: end: 20100213

REACTIONS (1)
  - AFFECTIVE DISORDER [None]
